FAERS Safety Report 8978898 (Version 1)
Quarter: 2012Q4

REPORT INFORMATION
  Report Type: 
  Country: GB (occurrence: GB)
  Receive Date: 20121221
  Receipt Date: 20121221
  Transmission Date: 20130627
  Serious: Yes (Hospitalization)
  Sender: FDA-Public Use
  Company Number: PHHY2012GB116698

PATIENT
  Age: 73 Year
  Sex: Female

DRUGS (9)
  1. OMEPRAZOLE [Suspect]
     Indication: GASTROOESOPHAGEAL REFLUX PROPHYLAXIS
     Dosage: 40 mg, QD
     Route: 048
     Dates: start: 20121026, end: 20121116
  2. CO-TRIMOXAZOLE [Suspect]
     Indication: PROPHYLACTIC CHEMOTHERAPY
     Dosage: 1920 mg, QW3
     Route: 048
     Dates: start: 20121026, end: 20121112
  3. THALIDOMIDE [Concomitant]
  4. METOCLOPRAMIDE HYDROCHLORIDE [Concomitant]
  5. ALLOPURINOL [Concomitant]
  6. MACROGOL [Concomitant]
  7. BISOPROLOL [Concomitant]
  8. PARACETAMOL [Concomitant]
  9. TRAMADOL [Concomitant]

REACTIONS (1)
  - Hyponatraemia [Recovering/Resolving]
